FAERS Safety Report 6117294-7 (Version None)
Quarter: 2009Q1

REPORT INFORMATION
  Report Type: 
  Country: None (occurrence: None)
  Receive Date: 20090314
  Receipt Date: 20090113
  Transmission Date: 20090719
  Serious: No
  Sender: FDA-Public Use
  Company Number: US-ABBOTT-09P-163-0497390-00

PATIENT
  Sex: Female

DRUGS (6)
  1. HUMIRA [Suspect]
     Indication: CROHN'S DISEASE
     Dates: start: 20080113
  2. PERCOCET [Concomitant]
     Indication: PAIN
  3. ALLEGRA [Concomitant]
     Indication: HYPERSENSITIVITY
  4. MAXZIDE [Concomitant]
     Indication: HYPERTENSION
  5. MAXZIDE [Concomitant]
     Indication: FLUID RETENTION
  6. UNKNOWN MEDICATION [Concomitant]
     Indication: DRUG USE FOR UNKNOWN INDICATION

REACTIONS (2)
  - DRUG INEFFECTIVE [None]
  - WEIGHT INCREASED [None]
